FAERS Safety Report 25188770 (Version 2)
Quarter: 2025Q3

REPORT INFORMATION
  Report Type: Spontaneous
  Country: US (occurrence: US)
  Receive Date: 20250411
  Receipt Date: 20250809
  Transmission Date: 20251021
  Serious: Yes (Other)
  Sender: ALEXION PHARMACEUTICALS
  Company Number: US-AstraZeneca-CH-00842807A

PATIENT
  Age: 55 Year
  Sex: Female
  Weight: 315 kg

DRUGS (10)
  1. FASENRA [Suspect]
     Active Substance: BENRALIZUMAB
     Indication: Asthma
     Dosage: 30 MILLIGRAM PER MILLILITRE, Q8W
     Dates: start: 20240417
  2. FASENRA [Suspect]
     Active Substance: BENRALIZUMAB
     Indication: Chronic obstructive pulmonary disease
  3. ALBUTEROL [Concomitant]
     Active Substance: ALBUTEROL
     Route: 065
  4. ATROVENT [Concomitant]
     Active Substance: IPRATROPIUM BROMIDE
     Route: 065
  5. COREG [Concomitant]
     Active Substance: CARVEDILOL
     Route: 065
  6. ELIQUIS [Concomitant]
     Active Substance: APIXABAN
     Route: 065
  7. IPRATROPIUM BROMIDE [Concomitant]
     Active Substance: IPRATROPIUM BROMIDE
     Route: 065
  8. PANADOL [Concomitant]
     Active Substance: ACETAMINOPHEN
     Route: 065
  9. SPIRIVA [Concomitant]
     Active Substance: TIOTROPIUM BROMIDE MONOHYDRATE
     Route: 065
  10. SYMBICORT [Concomitant]
     Active Substance: BUDESONIDE\FORMOTEROL FUMARATE DIHYDRATE
     Route: 065

REACTIONS (5)
  - Thrombosis [Recovering/Resolving]
  - Speech disorder [Recovered/Resolved]
  - Dyspnoea [Recovering/Resolving]
  - Pain [Recovering/Resolving]
  - Sciatic nerve neuropathy [Not Recovered/Not Resolved]

NARRATIVE: CASE EVENT DATE: 20250404
